FAERS Safety Report 18054633 (Version 1)
Quarter: 2020Q3

REPORT INFORMATION
  Report Type: Spontaneous
  Country: US (occurrence: US)
  Receive Date: 20200722
  Receipt Date: 20200722
  Transmission Date: 20201103
  Serious: No
  Sender: FDA-Public Use
  Company Number: None

PATIENT
  Age: 70 Year
  Sex: Female
  Weight: 46.4 kg

DRUGS (6)
  1. KLOR?CON M10 [Concomitant]
     Active Substance: POTASSIUM CHLORIDE
  2. VITAMIN B12 [Concomitant]
     Active Substance: CYANOCOBALAMIN
  3. LOVENOX [Concomitant]
     Active Substance: ENOXAPARIN SODIUM
  4. CAPECITABINE. [Suspect]
     Active Substance: CAPECITABINE
     Indication: BREAST CANCER
     Route: 048
     Dates: start: 20190724, end: 20200722
  5. PROLIA [Concomitant]
     Active Substance: DENOSUMAB
  6. HEPARIN (PORCINE) IN NACL [Concomitant]

REACTIONS (1)
  - Disease progression [None]

NARRATIVE: CASE EVENT DATE: 20200722
